FAERS Safety Report 7319393-0 (Version None)
Quarter: 2011Q1

REPORT INFORMATION
  Report Type: 
  Country: None (occurrence: None)
  Receive Date: 20110228
  Receipt Date: 20100224
  Transmission Date: 20110831
  Serious: No
  Sender: FDA-Public Use
  Company Number: A0847941A

PATIENT
  Sex: Male

DRUGS (2)
  1. LAMICTAL [Suspect]
     Route: 065
  2. LAMISIL [Suspect]

REACTIONS (3)
  - ABNORMAL BEHAVIOUR [None]
  - PERSONALITY CHANGE [None]
  - DRUG DISPENSING ERROR [None]
